FAERS Safety Report 14509491 (Version 1)
Quarter: 2018Q1

REPORT INFORMATION
  Report Type: Report from Study
  Country: CO (occurrence: CO)
  Receive Date: 20180209
  Receipt Date: 20180209
  Transmission Date: 20180509
  Serious: Yes (Death, Hospitalization)
  Sender: FDA-Public Use
  Company Number: CO-INCYTE CORPORATION-2018IN000995

PATIENT

DRUGS (1)
  1. JAKAVI [Suspect]
     Active Substance: RUXOLITINIB
     Indication: MYELOFIBROSIS
     Dosage: 20 MG, BID
     Route: 048
     Dates: start: 20170606, end: 201711

REACTIONS (12)
  - Dyspnoea [Unknown]
  - Pyrexia [Unknown]
  - Pulmonary mass [Unknown]
  - Brain injury [Unknown]
  - Blood sodium decreased [Unknown]
  - Decreased immune responsiveness [Unknown]
  - Febrile neutropenia [Unknown]
  - Urinary tract infection [Unknown]
  - Blood glucose decreased [Unknown]
  - Heart rate increased [Unknown]
  - Cardio-respiratory arrest [Fatal]
  - Amnesia [Unknown]

NARRATIVE: CASE EVENT DATE: 20180105
